FAERS Safety Report 11432365 (Version 1)
Quarter: 2015Q3

REPORT INFORMATION
  Report Type: Spontaneous
  Country: US (occurrence: US)
  Receive Date: 20150828
  Receipt Date: 20150828
  Transmission Date: 20151125
  Serious: Yes (Hospitalization)
  Sender: FDA-Public Use
  Company Number: US-MYLANLABS-2015M1028255

PATIENT

DRUGS (2)
  1. CLOZAPINE TABLETS, USP [Suspect]
     Active Substance: CLOZAPINE
     Indication: SCHIZOPHRENIA
     Dosage: 50 MG, HS
     Route: 048
  2. CLOZAPINE TABLETS, USP [Suspect]
     Active Substance: CLOZAPINE
     Indication: SCHIZOPHRENIA
     Dosage: 25 MG, AM
     Route: 048
     Dates: start: 201508

REACTIONS (3)
  - Treatment noncompliance [Recovered/Resolved]
  - Fatigue [Not Recovered/Not Resolved]
  - Psychotic disorder [Recovering/Resolving]

NARRATIVE: CASE EVENT DATE: 201508
